FAERS Safety Report 14134306 (Version 1)
Quarter: 2017Q4

REPORT INFORMATION
  Report Type: Spontaneous
  Country: US (occurrence: US)
  Receive Date: 20171027
  Receipt Date: 20171027
  Transmission Date: 20180321
  Serious: Yes (Hospitalization, Other)
  Sender: FDA-Public Use
  Company Number: US-AUROBINDO-AUR-APL-2017-42368

PATIENT
  Age: 48 Year
  Sex: Male

DRUGS (2)
  1. BETAMETHASONE. [Suspect]
     Active Substance: BETAMETHASONE
     Indication: BACK PAIN
     Dosage: 2ML (6 MG/ML)
     Route: 065
  2. BUPIVACAINE HYDROCHLORIDE. [Suspect]
     Active Substance: BUPIVACAINE HYDROCHLORIDE
     Indication: BACK PAIN
     Dosage: 4ML OF 0.25%.
     Route: 065

REACTIONS (12)
  - Dural arteriovenous fistula [Recovered/Resolved]
  - Urinary incontinence [Recovered/Resolved]
  - Clonus [Recovered/Resolved]
  - Oedema [Recovered/Resolved]
  - Movement disorder [Recovered/Resolved]
  - Spinal cord ischaemia [Recovered/Resolved]
  - Hyporeflexia [Recovered/Resolved]
  - Paraparesis [Recovered/Resolved]
  - Sensory loss [Recovered/Resolved]
  - Anal incontinence [Recovered/Resolved]
  - Hypertension [Recovered/Resolved]
  - Muscular weakness [Recovered/Resolved]
